FAERS Safety Report 17937577 (Version 6)
Quarter: 2020Q3

REPORT INFORMATION
  Report Type: Spontaneous
  Country: HR (occurrence: HR)
  Receive Date: 20200624
  Receipt Date: 20200917
  Transmission Date: 20201103
  Serious: Yes (Hospitalization, Other)
  Sender: FDA-Public Use
  Company Number: HR-PFIZER INC-2020238937

PATIENT
  Age: 7 Year
  Sex: Female
  Weight: 30 kg

DRUGS (6)
  1. L?ASPARAGINASE [Suspect]
     Active Substance: ASPARAGINASE
     Indication: ACUTE LYMPHOCYTIC LEUKAEMIA
     Dosage: 5000 IU/M2, 1X/DAY, I.V./1H (8 TIMES)
     Route: 042
  2. METHOTREXATE SODIUM. [Suspect]
     Active Substance: METHOTREXATE SODIUM
     Indication: ACUTE LYMPHOCYTIC LEUKAEMIA
     Dosage: 12 MG
     Route: 037
  3. PREDNISONE. [Suspect]
     Active Substance: PREDNISONE
     Indication: ACUTE LYMPHOCYTIC LEUKAEMIA
     Dosage: 60 MG/M2, 1X/DAY, 1?28 DAY
     Route: 048
  4. PREDNISONE. [Suspect]
     Active Substance: PREDNISONE
     Dosage: UNK, DAILY, TAPERING
     Route: 048
  5. DAUNORUBICIN HCL [Suspect]
     Active Substance: DAUNORUBICIN HYDROCHLORIDE
     Indication: ACUTE LYMPHOCYTIC LEUKAEMIA
     Dosage: 30 MG/M2, 1X/DAY, I.V./1 H (4 TIMES)
     Route: 042
  6. VINCRISTINE SULFATE. [Suspect]
     Active Substance: VINCRISTINE SULFATE
     Indication: ACUTE LYMPHOCYTIC LEUKAEMIA
     Dosage: 1.5 MG/M2, 1X/DAY, 4 TIMES
     Route: 042

REACTIONS (14)
  - Tremor [Recovered/Resolved]
  - Cerebral ischaemia [Recovered/Resolved]
  - Thrombosis [Recovered/Resolved]
  - Electroencephalogram abnormal [Recovered/Resolved]
  - Febrile neutropenia [Recovered/Resolved]
  - Incoherent [Recovered/Resolved]
  - Ileus paralytic [Recovered/Resolved]
  - Epilepsy [Recovered/Resolved]
  - Hypotonia [Recovered/Resolved]
  - Nystagmus [Recovered/Resolved]
  - Neurotoxicity [Recovered/Resolved]
  - Hypertension [Recovered/Resolved]
  - Asthenia [Recovered/Resolved]
  - Hemiparesis [Recovered/Resolved]
